FAERS Safety Report 14766416 (Version 2)
Quarter: 2018Q2

REPORT INFORMATION
  Report Type: Spontaneous
  Country: US (occurrence: US)
  Receive Date: 20180416
  Receipt Date: 20180618
  Transmission Date: 20180711
  Serious: No
  Sender: FDA-Public Use
  Company Number: US-SUNOVION-2018SUN001256

PATIENT
  Age: 48 Year
  Sex: Male
  Weight: 72.56 kg

DRUGS (2)
  1. APTIOM [Suspect]
     Active Substance: ESLICARBAZEPINE ACETATE
     Indication: SEIZURE
     Dosage: 400 MG, QD
     Route: 048
     Dates: start: 20180320, end: 20180402
  2. LEVETIRACETAM. [Concomitant]
     Active Substance: LEVETIRACETAM
     Dosage: 1500 MG, BID
     Route: 048

REACTIONS (4)
  - Headache [Unknown]
  - Muscle tightness [Unknown]
  - Neck pain [Unknown]
  - Occipital neuralgia [Unknown]

NARRATIVE: CASE EVENT DATE: 201803
